FAERS Safety Report 8947863 (Version 1)
Quarter: 2012Q4

REPORT INFORMATION
  Report Type: Spontaneous
  Country: US (occurrence: None)
  Receive Date: 20121127
  Receipt Date: 20121127
  Transmission Date: 20130627
  Serious: Yes (Other)
  Sender: FDA-Public Use
  Company Number: US-1195279

PATIENT
  Age: 78 Year
  Sex: Male

DRUGS (5)
  1. PREDNISOLONE ACETATE [Suspect]
     Indication: POSTOPERATIVE CARE
     Route: 047
  2. KETOROLAC TROMETHAMINE [Suspect]
     Route: 047
  3. GATIFLOXACIN [Suspect]
     Route: 061
  4. CEFAZOLIN SODIUM [Suspect]
     Route: 057
  5. DEXAMETHASONE SODIUM PHOSPHATE [Suspect]

REACTIONS (2)
  - Endophthalmitis [None]
  - Intraocular pressure increased [None]
